FAERS Safety Report 13667805 (Version 1)
Quarter: 2017Q2

REPORT INFORMATION
  Report Type: Report from Study
  Country: CA (occurrence: CA)
  Receive Date: 20170620
  Receipt Date: 20170620
  Transmission Date: 20170830
  Serious: Yes (Other)
  Sender: FDA-Public Use
  Company Number: CA-TEVA-773730ACC

PATIENT
  Age: 45 Year
  Sex: Female

DRUGS (8)
  1. CINQAIR [Suspect]
     Active Substance: RESLIZUMAB
     Indication: ASTHMA
     Dosage: STRENGTH: 10MG/ML, INFUSION
     Route: 042
     Dates: start: 20170519
  2. VITAMIN D [Concomitant]
     Active Substance: CHOLECALCIFEROL
  3. RESPIMAT [Concomitant]
  4. VENTOLIN [Concomitant]
     Active Substance: ALBUTEROL SULFATE
  5. ADVAIR PUMP [Concomitant]
  6. FLOVENT [Concomitant]
     Active Substance: FLUTICASONE PROPIONATE
  7. LEVOTHYROXINE. [Concomitant]
     Active Substance: LEVOTHYROXINE
  8. NUCYNTA [Concomitant]
     Active Substance: TAPENTADOL HYDROCHLORIDE

REACTIONS (5)
  - Discomfort [Unknown]
  - Disability [Recovering/Resolving]
  - Lung infection [Recovering/Resolving]
  - Dyspnoea [Recovering/Resolving]
  - Seasonal allergy [Unknown]

NARRATIVE: CASE EVENT DATE: 20170523
